FAERS Safety Report 16040687 (Version 1)
Quarter: 2019Q1

REPORT INFORMATION
  Report Type: Spontaneous
  Country: US (occurrence: US)
  Receive Date: 20190306
  Receipt Date: 20190306
  Transmission Date: 20190418
  Serious: Yes (Other)
  Sender: FDA-Public Use
  Company Number: US-VIVIMED-2018SP004082

PATIENT

DRUGS (2)
  1. METRONIDAZOLE. [Suspect]
     Active Substance: METRONIDAZOLE
     Indication: EXTRADURAL ABSCESS
     Dosage: 500 MG, QID
     Route: 048
  2. CEFEPIME [Concomitant]
     Active Substance: CEFEPIME HYDROCHLORIDE
     Indication: EXTRADURAL ABSCESS
     Dosage: 2 G, BID
     Route: 042

REACTIONS (2)
  - Ataxia [Recovered/Resolved]
  - Dysarthria [Recovered/Resolved]
